FAERS Safety Report 8763342 (Version 1)
Quarter: 2012Q4

REPORT INFORMATION
  Report Type: 
  Country: US (occurrence: US)
  Receive Date: 20120831
  Receipt Date: 20120831
  Transmission Date: 20130627
  Serious: No
  Sender: FDA-Public Use
  Company Number: US-PFIZER INC-2012214319

PATIENT
  Age: 66 Year
  Sex: Male
  Weight: 71.66 kg

DRUGS (1)
  1. CHANTIX [Suspect]
     Indication: SMOKING CESSATION THERAPY
     Dosage: 0.5 mg, 1x/day
     Route: 048
     Dates: start: 20120825, end: 201208

REACTIONS (2)
  - Abnormal dreams [Unknown]
  - Personality change [Unknown]
